FAERS Safety Report 7674193-7 (Version None)
Quarter: 2011Q3

REPORT INFORMATION
  Report Type: 
  Country: None (occurrence: None)
  Receive Date: 20110810
  Receipt Date: 20110801
  Transmission Date: 20111222
  Serious: Yes (Hospitalization, Other)
  Sender: FDA-Public Use
  Company Number: US-BAYER-201029721NA

PATIENT
  Age: 46 Year
  Sex: Female
  Weight: 78.912 kg

DRUGS (4)
  1. YAZ [Suspect]
     Indication: PREMENSTRUAL SYNDROME
  2. LEVOTHYROXINE SODIUM [Concomitant]
     Indication: THYROID DISORDER
     Dosage: 50 ?G/D, QD
     Dates: start: 20070801
  3. YAZ [Suspect]
     Indication: MENOPAUSE
     Dosage: SAMPLES, 2006, 3 PACKS; QD
     Route: 048
     Dates: start: 20071102, end: 20080725
  4. ZYRTEC [Concomitant]
     Dosage: UNK
     Dates: start: 20080311

REACTIONS (2)
  - THROMBOPHLEBITIS SUPERFICIAL [None]
  - DEEP VEIN THROMBOSIS [None]
